FAERS Safety Report 18848842 (Version 1)
Quarter: 2021Q1

REPORT INFORMATION
  Report Type: Spontaneous
  Country: US (occurrence: US)
  Receive Date: 20210205
  Receipt Date: 20210205
  Transmission Date: 20210419
  Serious: Yes (Other)
  Sender: FDA-Public Use
  Company Number: NVSC2021US021007

PATIENT
  Age: 61 Year
  Sex: Female

DRUGS (4)
  1. EPINEPHRINE HYDROGENTARTRATE [Suspect]
     Active Substance: EPINEPHRINE BITARTRATE
     Indication: TOXIC SHOCK SYNDROME
     Dosage: UNK (HIGH DOSE)
     Route: 065
  2. NOREPINEPHRINE. [Suspect]
     Active Substance: NOREPINEPHRINE
     Indication: TOXIC SHOCK SYNDROME
     Dosage: UNK (HIGH DOSE)
     Route: 065
  3. EPINEPHRINE HYDROGENTARTRATE [Suspect]
     Active Substance: EPINEPHRINE BITARTRATE
     Indication: RESPIRATORY FAILURE
  4. NOREPINEPHRINE. [Suspect]
     Active Substance: NOREPINEPHRINE
     Indication: RESPIRATORY FAILURE

REACTIONS (2)
  - Peripheral ischaemia [Not Recovered/Not Resolved]
  - Product use in unapproved indication [Unknown]
